FAERS Safety Report 8519869-4 (Version None)
Quarter: 2012Q3

REPORT INFORMATION
  Report Type: 
  Country: None (occurrence: None)
  Receive Date: 20120719
  Receipt Date: 20120716
  Transmission Date: 20120928
  Serious: Yes (Other)
  Sender: FDA-Public Use
  Company Number: US-BIOGENIDEC-2012BI025452

PATIENT
  Age: 36 Year
  Sex: Male
  Weight: 63 kg

DRUGS (14)
  1. SERTRALINE HYDROCHLORIDE [Concomitant]
     Route: 048
  2. ACYCLOVIR [Concomitant]
     Route: 048
  3. AMLODIPINE [Concomitant]
     Route: 048
  4. TAMSULOSIN HCL [Concomitant]
     Route: 048
  5. AVONEX [Concomitant]
     Indication: MULTIPLE SCLEROSIS
     Route: 030
  6. ALPRAZOLAM [Concomitant]
     Route: 048
  7. BACLOFEN [Concomitant]
     Route: 048
  8. HYDROCODONE BITARTRATE + ACETAMINOPHEN [Concomitant]
     Route: 048
  9. AVONEX [Concomitant]
     Route: 030
     Dates: start: 20001104
  10. OXCARBAZEPINE [Concomitant]
     Route: 048
  11. SILDENAFIL [Concomitant]
     Route: 048
  12. TYSABRI [Suspect]
     Indication: MULTIPLE SCLEROSIS
     Route: 042
     Dates: start: 20090406, end: 20120504
  13. OMEPRAZOLE [Concomitant]
     Route: 048
  14. ATENOLOL AND CHLORTHALIDONE [Concomitant]
     Route: 048

REACTIONS (1)
  - PROGRESSIVE MULTIFOCAL LEUKOENCEPHALOPATHY [None]
